FAERS Safety Report 8584848-8 (Version None)
Quarter: 2012Q3

REPORT INFORMATION
  Report Type: 
  Country: None (occurrence: None)
  Receive Date: 20120810
  Receipt Date: 20120730
  Transmission Date: 20120928
  Serious: Yes (Hospitalization, Disabling)
  Sender: FDA-Public Use
  Company Number: US-JNJFOC-20120612622

PATIENT
  Sex: Male
  Weight: 97.98 kg

DRUGS (17)
  1. PREDNISONE TAB [Concomitant]
     Indication: PROSTATE CANCER METASTATIC
     Route: 048
     Dates: start: 20111229, end: 20120101
  2. SIMVASTATIN [Concomitant]
     Route: 065
  3. ZYTIGA [Suspect]
     Route: 048
     Dates: start: 20120530, end: 20120613
  4. PREDNISONE TAB [Concomitant]
     Route: 048
     Dates: start: 20120530, end: 20120613
  5. PREDNISONE TAB [Concomitant]
     Route: 048
     Dates: start: 20120530, end: 20120613
  6. METOPROLOL TARTRATE [Concomitant]
     Route: 065
  7. ZYTIGA [Suspect]
     Indication: PROSTATE CANCER METASTATIC
     Route: 048
     Dates: start: 20120101, end: 20120530
  8. HUMULIN 70/30 [Concomitant]
     Indication: TYPE 2 DIABETES MELLITUS
     Route: 058
     Dates: start: 20100101
  9. ZYTIGA [Suspect]
     Route: 048
     Dates: start: 20120530, end: 20120613
  10. ZYTIGA [Suspect]
     Route: 048
     Dates: start: 20111229, end: 20120101
  11. ZYTIGA [Suspect]
     Indication: MULTIPLE MYELOMA
     Route: 048
     Dates: start: 20120101, end: 20120530
  12. PREDNISONE TAB [Concomitant]
     Indication: MULTIPLE MYELOMA
     Route: 048
     Dates: start: 20111229, end: 20120101
  13. PREDNISONE TAB [Concomitant]
     Route: 048
     Dates: start: 20120101, end: 20120530
  14. ZYTIGA [Suspect]
     Route: 048
     Dates: start: 20111229, end: 20120101
  15. PREDNISONE TAB [Concomitant]
     Route: 048
     Dates: start: 20120101, end: 20120530
  16. ENALAPRIL MALEATE [Concomitant]
     Route: 065
  17. AMLODIPINE BESYLATE [Concomitant]
     Route: 065

REACTIONS (14)
  - WEIGHT INCREASED [None]
  - CHEST PAIN [None]
  - HYPERHIDROSIS [None]
  - GAIT DISTURBANCE [None]
  - PAIN IN EXTREMITY [None]
  - FLATULENCE [None]
  - DYSPNOEA [None]
  - NAUSEA [None]
  - RETCHING [None]
  - INSOMNIA [None]
  - SINUS OPERATION [None]
  - CHEST DISCOMFORT [None]
  - HOT FLUSH [None]
  - JOINT SWELLING [None]
